FAERS Safety Report 6046225-3 (Version None)
Quarter: 2009Q1

REPORT INFORMATION
  Report Type: 
  Country: None (occurrence: None)
  Receive Date: 20090121
  Receipt Date: 20090121
  Transmission Date: 20090719
  Serious: No
  Sender: FDA-Public Use
  Company Number: None

PATIENT
  Age: 22 Day
  Sex: Female

DRUGS (1)
  1. LORAZEPAM [Suspect]
     Dosage: 0.05MG ONCE UNK ONCE

REACTIONS (2)
  - DYSKINESIA [None]
  - OXYGEN SATURATION DECREASED [None]
